FAERS Safety Report 8837937 (Version 2)
Quarter: 2013Q1

REPORT INFORMATION
  Report Type: Spontaneous
  Country: JP (occurrence: JP)
  Receive Date: 20121012
  Receipt Date: 20130125
  Transmission Date: 20140127
  Serious: Yes (Other)
  Sender: FDA-Public Use
  Company Number: JP-ROCHE-1053529

PATIENT
  Age: 47 None
  Sex: Male

DRUGS (19)
  1. AVASTIN [Suspect]
     Indication: COLON CANCER RECURRENT
     Dosage: DOSAGE IS UNCERTAIN.
     Route: 041
     Dates: start: 20100813, end: 20120712
  2. ELPLAT [Suspect]
     Indication: COLON CANCER RECURRENT
     Route: 041
     Dates: start: 20100813, end: 20101025
  3. ELPLAT [Suspect]
     Indication: COLON CANCER RECURRENT
     Route: 041
     Dates: start: 20110812, end: 20120224
  4. 5-FU [Concomitant]
     Indication: COLON CANCER RECURRENT
     Dosage: DOSAGE IS UNCERTAIN.
     Route: 040
     Dates: start: 20100813, end: 20101025
  5. 5-FU [Concomitant]
     Indication: COLON CANCER RECURRENT
     Dosage: DOSAGE IS UNCERTAIN.
     Route: 041
     Dates: start: 20100813, end: 20101025
  6. 5-FU [Concomitant]
     Indication: COLON CANCER RECURRENT
     Dosage: DOSAGE IS UNCERTAIN.
     Route: 040
     Dates: start: 2010, end: 2011
  7. 5-FU [Concomitant]
     Indication: COLON CANCER RECURRENT
     Dosage: DOSAGE IS UNCERTAIN.
     Route: 041
     Dates: start: 2010, end: 2011
  8. 5-FU [Concomitant]
     Indication: COLON CANCER RECURRENT
     Dosage: DOSAGE IS UNCERTAIN.
     Route: 040
     Dates: start: 20110812, end: 20120224
  9. 5-FU [Concomitant]
     Indication: COLON CANCER RECURRENT
     Dosage: DOSAGE IS UNCERTAIN.
     Route: 041
     Dates: start: 20110812, end: 20120224
  10. 5-FU [Concomitant]
     Indication: COLON CANCER RECURRENT
     Dosage: DOSAGE IS UNCERTAIN.
     Route: 040
     Dates: start: 2012, end: 20120712
  11. 5-FU [Concomitant]
     Indication: COLON CANCER RECURRENT
     Dosage: DOSAGE IS UNCERTAIN.
     Route: 041
     Dates: start: 2012, end: 20120712
  12. ISOVORIN [Concomitant]
     Indication: COLON CANCER RECURRENT
     Route: 041
     Dates: start: 20100813, end: 20101025
  13. ISOVORIN [Concomitant]
     Indication: COLON CANCER RECURRENT
     Route: 041
     Dates: start: 2010, end: 2011
  14. ISOVORIN [Concomitant]
     Indication: COLON CANCER RECURRENT
     Route: 041
     Dates: start: 20110812, end: 20120224
  15. ISOVORIN [Concomitant]
     Indication: COLON CANCER RECURRENT
     Route: 041
     Dates: start: 2012, end: 20120712
  16. DEXART [Concomitant]
     Indication: PROPHYLAXIS OF NAUSEA AND VOMITING
     Route: 042
     Dates: start: 20100813, end: 20120712
  17. ALOXI [Concomitant]
     Indication: PROPHYLAXIS OF NAUSEA AND VOMITING
     Route: 042
     Dates: start: 20110812, end: 20120712
  18. FOSAPREPITANT MEGLUMINE [Concomitant]
     Indication: PROPHYLAXIS OF NAUSEA AND VOMITING
     Route: 041
     Dates: start: 20110812, end: 20120712
  19. ELPLAT [Concomitant]

REACTIONS (4)
  - Anaphylactic shock [Recovered/Resolved]
  - Neuropathy peripheral [Unknown]
  - Anaphylactic shock [Unknown]
  - Hypersensitivity [Unknown]
